FAERS Safety Report 14315610 (Version 1)
Quarter: 2017Q4

REPORT INFORMATION
  Report Type: Spontaneous
  Country: IT (occurrence: IT)
  Receive Date: 20171221
  Receipt Date: 20171221
  Transmission Date: 20180321
  Serious: Yes (Hospitalization)
  Sender: FDA-Public Use
  Company Number: IT-SA-2017SA251666

PATIENT
  Age: 6 Year
  Sex: Female

DRUGS (26)
  1. URSODEOXYCHOLIC ACID [Concomitant]
     Active Substance: URSODIOL
     Dosage: CUMULATIVE DOSE TO FIRST REACTION: 2880MG
     Route: 065
     Dates: start: 20161212, end: 20170120
  2. BACTRIM [Suspect]
     Active Substance: SULFAMETHOXAZOLE\TRIMETHOPRIM
     Route: 065
  3. DELTACORTENE [Concomitant]
     Active Substance: PREDNISONE
     Dosage: 25 MG COMPRESSE; CUMULATIVE DOSE TO FIRST REACTION: 100MG
     Route: 065
     Dates: start: 20161213, end: 20161220
  4. DIAMINOCILLINA [Concomitant]
     Active Substance: PENICILLIN G BENZATHINE
     Dosage: DOSE: 600000?IU
     Route: 065
     Dates: start: 20161213
  5. TEGRETOL [Concomitant]
     Active Substance: CARBAMAZEPINE
     Dosage: CUMULATIVE DOSE TO FIRST REACTION:1440MG
     Route: 065
     Dates: start: 20161213, end: 20161218
  6. ALKERAN [Suspect]
     Active Substance: MELPHALAN
     Indication: ALLOGENIC BONE MARROW TRANSPLANTATION THERAPY
     Route: 042
     Dates: start: 20161220, end: 20161220
  7. ENDOXAN BAXTER [Suspect]
     Active Substance: CYCLOPHOSPHAMIDE
     Indication: ALLOGENIC BONE MARROW TRANSPLANTATION THERAPY
     Route: 042
     Dates: start: 20161218, end: 20161219
  8. LASIX [Concomitant]
     Active Substance: FUROSEMIDE
     Dosage: CUMULATIVE DOSE TO FIRST REACTION :528MG
     Route: 042
     Dates: start: 20161213
  9. NYSTATIN. [Concomitant]
     Active Substance: NYSTATIN
     Dosage: CUMULATIVE DOSE TO FIRST REACTION: 180ML
     Route: 048
     Dates: start: 20161212, end: 20170120
  10. CIPROFLOXACIN. [Concomitant]
     Active Substance: CIPROFLOXACIN
     Dosage: CUMULATIVE DOSE TO FIRST REACTION: 6000MG
     Route: 048
     Dates: start: 20161212, end: 20161229
  11. ITRACONAZOLE. [Concomitant]
     Active Substance: ITRACONAZOLE
     Route: 048
     Dates: start: 20161212, end: 20161229
  12. ACICLOVIR [Concomitant]
     Active Substance: ACYCLOVIR
     Dosage: CUMULATIVE DOSE TO FIRST REACTION:12600MG
     Route: 065
     Dates: start: 20161218, end: 20161218
  13. ALOXI [Concomitant]
     Active Substance: PALONOSETRON HYDROCHLORIDE
     Dosage: 500 MICROGRAMS SOFT CAPSULES
     Route: 042
     Dates: start: 20161214, end: 20161217
  14. PRIVIGEN [Concomitant]
     Active Substance: HUMAN IMMUNOGLOBULIN G
     Route: 065
     Dates: start: 20161217, end: 20170109
  15. ANTI-THYMOCYTE GLOBULIN (RABBIT) [Suspect]
     Active Substance: LAPINE T-LYMPHOCYTE IMMUNE GLOBULIN
     Indication: ALLOGENIC BONE MARROW TRANSPLANTATION THERAPY
     Route: 042
     Dates: start: 20161220, end: 20161221
  16. TRIMETON [Concomitant]
     Active Substance: CHLORPHENIRAMINE MALEATE
     Dosage: CUMULATIVE DOSE TO FIRST REACTION: 20MG
     Route: 065
     Dates: start: 20161220, end: 20161221
  17. HEPARIN [Concomitant]
     Active Substance: HEPARIN SODIUM
     Dosage: CUMULATIVE DOSE TO FIRST REACTION:26070IU
     Route: 042
     Dates: start: 20161213
  18. BUSILVEX [Suspect]
     Active Substance: BUSULFAN
     Indication: ALLOGENIC BONE MARROW TRANSPLANTATION THERAPY
     Route: 042
     Dates: start: 20161214, end: 20161217
  19. PERFALGAN [Concomitant]
     Active Substance: ACETAMINOPHEN
     Dosage: CUMULATIVE DOSE TO FIRST REACTION:750MG
     Route: 065
     Dates: start: 20161220, end: 20161221
  20. URBASON [Concomitant]
     Active Substance: METHYLPREDNISOLONE
     Dosage: CUMULATIVE DOSE TO FIRST REACTION:48MG
     Route: 042
     Dates: start: 20161220, end: 20161221
  21. ACICLOVIR [Concomitant]
     Active Substance: ACYCLOVIR
     Dosage: CUMULATIVE DOSE TO FIRST REACTION :6750MG
     Dates: start: 20161219
  22. RANITIDINE. [Concomitant]
     Active Substance: RANITIDINE
     Dosage: CUMULATIVE DOSE TO FIRST REACTION :1100MG
     Route: 065
     Dates: start: 20161213
  23. METHOTREXATE. [Suspect]
     Active Substance: METHOTREXATE
     Indication: ALLOGENIC BONE MARROW TRANSPLANTATION THERAPY
     Route: 042
     Dates: start: 20161223, end: 20161228
  24. LASIX [Concomitant]
     Active Substance: FUROSEMIDE
     Dosage: LASIX
     Route: 065
     Dates: start: 20161212, end: 20161212
  25. SANDIMMUN [Concomitant]
     Active Substance: CYCLOSPORINE
     Dosage: CUMULATIVE DOSE TO FIRST REACTION: 288MG
     Route: 065
     Dates: start: 20161220
  26. EMEND [Concomitant]
     Active Substance: APREPITANT
     Route: 065
     Dates: start: 20161214, end: 20161216

REACTIONS (6)
  - Culture stool positive [Recovering/Resolving]
  - Erythema [Recovering/Resolving]
  - Palmar erythema [Recovering/Resolving]
  - Conjunctivitis [Recovering/Resolving]
  - Abdominal pain [Recovering/Resolving]
  - Diarrhoea [Recovering/Resolving]

NARRATIVE: CASE EVENT DATE: 20161223
